FAERS Safety Report 4920477-2 (Version None)
Quarter: 2006Q1

REPORT INFORMATION
  Report Type: 
  Country: None (occurrence: None)
  Receive Date: 20060223
  Receipt Date: 20060117
  Transmission Date: 20060701
  Serious: Yes (Death, Hospitalization)
  Sender: FDA-Public Use
  Company Number: US-MERCK-0601USA01923

PATIENT
  Age: 74 Year
  Sex: Male
  Weight: 45 kg

DRUGS (8)
  1. VIOXX [Suspect]
     Indication: RHEUMATOID ARTHRITIS
     Route: 048
     Dates: start: 19991025, end: 20020101
  2. VIOXX [Suspect]
     Route: 048
     Dates: start: 19991025, end: 20020101
  3. EFFEXOR [Concomitant]
     Route: 065
  4. FOLIC ACID [Concomitant]
     Route: 065
  5. METHOTREXATE [Concomitant]
     Route: 065
  6. DITROPAN XL [Concomitant]
     Route: 065
  7. MIACALCIN [Concomitant]
     Route: 065
  8. LANOXIN [Concomitant]
     Route: 065

REACTIONS (11)
  - CARDIOMEGALY [None]
  - CEREBRAL INFARCTION [None]
  - CEREBROVASCULAR ACCIDENT [None]
  - CHRONIC OBSTRUCTIVE PULMONARY DISEASE [None]
  - DECUBITUS ULCER [None]
  - DEMENTIA [None]
  - DEMENTIA ALZHEIMER'S TYPE [None]
  - HIP FRACTURE [None]
  - PERIPHERAL ARTERY ANEURYSM [None]
  - URINARY INCONTINENCE [None]
  - VASCULAR DEMENTIA [None]
